FAERS Safety Report 5087225-X (Version None)
Quarter: 2006Q3

REPORT INFORMATION
  Report Type: 
  Country: None (occurrence: None)
  Receive Date: 20060821
  Receipt Date: 20060809
  Transmission Date: 20061208
  Serious: Yes (Hospitalization)
  Sender: FDA-Public Use
  Company Number: B0434390A

PATIENT
  Age: 51 Year
  Sex: Female

DRUGS (4)
  1. RETROVIR [Suspect]
     Indication: SYSTEMIC ANTIVIRAL TREATMENT
  2. EPIVIR [Suspect]
     Indication: SYSTEMIC ANTIVIRAL TREATMENT
  3. EFAVIRENZ [Suspect]
     Indication: SYSTEMIC ANTIVIRAL TREATMENT
  4. CO-TRIMOXAZOLE [Concomitant]

REACTIONS (4)
  - APLASIA PURE RED CELL [None]
  - IMMUNE RECONSTITUTION SYNDROME [None]
  - NORMOCHROMIC NORMOCYTIC ANAEMIA [None]
  - WHITE BLOOD CELL COUNT DECREASED [None]
